FAERS Safety Report 26210151 (Version 1)
Quarter: 2025Q4

REPORT INFORMATION
  Report Type: Spontaneous
  Country: US (occurrence: US)
  Receive Date: 20251229
  Receipt Date: 20251229
  Transmission Date: 20260118
  Serious: Yes (Death)
  Sender: MALLINCKRODT
  Company Number: US-MALLINCKRODT-MNK202508284

PATIENT
  Age: 35 Year
  Sex: Male

DRUGS (4)
  1. NITRIC OXIDE [Suspect]
     Active Substance: NITRIC OXIDE
     Indication: Hypoxia
     Dosage: UNKNOWN
     Route: 055
  2. BLEOMYCIN [Concomitant]
     Active Substance: BLEOMYCIN SULFATE
     Dosage: UNKNOWN
  3. CISPLATIN [Concomitant]
     Active Substance: CISPLATIN
     Dosage: UNKNOWN
  4. ETOPOSIDE [Concomitant]
     Active Substance: ETOPOSIDE
     Dosage: UNKNOWN

REACTIONS (3)
  - Death [Fatal]
  - Product use issue [Unknown]
  - Drug ineffective [Unknown]
